FAERS Safety Report 9937992 (Version 1)
Quarter: 2014Q1

REPORT INFORMATION
  Report Type: Report from Study
  Country: FR (occurrence: FR)
  Receive Date: 20140303
  Receipt Date: 20140303
  Transmission Date: 20141002
  Serious: Yes (Hospitalization)
  Sender: FDA-Public Use
  Company Number: FR-ROCHE-1354126

PATIENT
  Age: 75 Year
  Sex: Female

DRUGS (9)
  1. RITUXIMAB [Suspect]
     Indication: RHEUMATOID ARTHRITIS
     Route: 042
     Dates: start: 20080220, end: 20100719
  2. TOCILIZUMAB [Suspect]
     Indication: RHEUMATOID ARTHRITIS
     Route: 065
     Dates: start: 20100823
  3. HYDROXYCHLOROQUINE [Concomitant]
  4. METHOTREXATE [Concomitant]
  5. LEFLUNOMIDE [Concomitant]
  6. REMICADE [Concomitant]
  7. ENBREL [Concomitant]
  8. HUMIRA [Concomitant]
  9. CORTANCYL [Concomitant]

REACTIONS (16)
  - Fracture [Recovered/Resolved]
  - Sternal fracture [Recovered/Resolved]
  - Escherichia urinary tract infection [Recovered/Resolved]
  - Phlebitis [Unknown]
  - Eye irritation [Unknown]
  - Urinary incontinence [Unknown]
  - Cystitis [Not Recovered/Not Resolved]
  - Unevaluable event [Not Recovered/Not Resolved]
  - Actinic keratosis [Not Recovered/Not Resolved]
  - Dry skin [Not Recovered/Not Resolved]
  - Oedema peripheral [Not Recovered/Not Resolved]
  - Periphlebitis [Not Recovered/Not Resolved]
  - Helicobacter infection [Unknown]
  - Neuropathy peripheral [Not Recovered/Not Resolved]
  - Tooth abscess [Unknown]
  - Oral fungal infection [Unknown]
